FAERS Safety Report 24370718 (Version 1)
Quarter: 2024Q3

REPORT INFORMATION
  Report Type: Spontaneous
  Country: US (occurrence: US)
  Receive Date: 20240927
  Receipt Date: 20240927
  Transmission Date: 20241016
  Serious: Yes (Death, Other)
  Sender: BIOGEN
  Company Number: US-BBU-2024000286

PATIENT
  Age: 59 Year
  Sex: Male

DRUGS (2)
  1. TOCILIZUMAB [Suspect]
     Active Substance: TOCILIZUMAB
     Indication: Haemophagocytic lymphohistiocytosis
  2. ANAKINRA [Suspect]
     Active Substance: ANAKINRA
     Indication: Haemophagocytic lymphohistiocytosis

REACTIONS (5)
  - Sepsis [Fatal]
  - Septic shock [Fatal]
  - Escherichia bacteraemia [Fatal]
  - Enterococcal infection [Fatal]
  - Off label use [Unknown]
